FAERS Safety Report 8909197 (Version 1)
Quarter: 2012Q4

REPORT INFORMATION
  Report Type: Spontaneous
  Country: GB (occurrence: None)
  Receive Date: 20121107
  Receipt Date: 20121107
  Transmission Date: 20130627
  Serious: Yes (Hospitalization, Other)
  Sender: FDA-Public Use
  Company Number: AUR-APL-2012-04738

PATIENT
  Age: 36 Year
  Sex: Male

DRUGS (1)
  1. TOPIRAMATE [Suspect]
     Indication: MIGRAINE PROPHYLAXIS
     Route: 048

REACTIONS (7)
  - Speech disorder [None]
  - Personality change [None]
  - Lethargy [None]
  - Amnesia [None]
  - Obsessive-compulsive personality disorder [None]
  - Psychotic disorder [None]
  - Impaired self-care [None]
